FAERS Safety Report 7363353-0 (Version None)
Quarter: 2011Q1

REPORT INFORMATION
  Report Type: 
  Country: None (occurrence: None)
  Receive Date: 20110321
  Receipt Date: 20110310
  Transmission Date: 20110831
  Serious: Yes (Hospitalization)
  Sender: FDA-Public Use
  Company Number: JP-AMGEN-JPNSP2011002028

PATIENT
  Age: 79 Year
  Sex: Female
  Weight: 41 kg

DRUGS (5)
  1. RINDERON                           /00008501/ [Concomitant]
     Indication: RHEUMATOID ARTHRITIS
     Dosage: UNK, 1X/DAY
     Dates: start: 20070101
  2. GASMOTIN [Concomitant]
     Indication: GASTRITIS
     Dosage: UNK
     Dates: start: 20070101
  3. ENBREL [Suspect]
     Indication: RHEUMATOID ARTHRITIS
     Dosage: 25 MG, WEEKLY
     Route: 058
     Dates: start: 20100423, end: 20110108
  4. BONALON                            /01220302/ [Concomitant]
     Indication: OSTEOPOROSIS
     Dosage: UNK
     Dates: start: 19981201
  5. THYRADIN S [Concomitant]
     Indication: HYPOTHYROIDISM
     Dosage: UNK, 1X/DAY
     Dates: start: 20070101

REACTIONS (4)
  - OEDEMA PERIPHERAL [None]
  - ALOPECIA [None]
  - JOINT SWELLING [None]
  - ERYTHEMA [None]
